FAERS Safety Report 7184927-6 (Version None)
Quarter: 2010Q4

REPORT INFORMATION
  Report Type: 
  Country: None (occurrence: None)
  Receive Date: 20101222
  Receipt Date: 20101217
  Transmission Date: 20110411
  Serious: Yes (Life-Threatening, Hospitalization)
  Sender: FDA-Public Use
  Company Number: JP-BRACCO-004342

PATIENT
  Sex: Male
  Weight: 71 kg

DRUGS (15)
  1. IOPAMIDOL [Suspect]
     Indication: COMPUTERISED TOMOGRAM
     Dosage: ADMINISTERED AT 16:50
     Route: 042
     Dates: start: 20101125, end: 20101125
  2. IOPAMIDOL [Suspect]
     Indication: ANGINA PECTORIS
     Dosage: ADMINISTERED AT 16:50
     Route: 042
     Dates: start: 20101125, end: 20101125
  3. IOPAMIDOL [Suspect]
     Indication: CORONARY ARTERY BYPASS
     Dosage: ADMINISTERED AT 16:50
     Route: 042
     Dates: start: 20101125, end: 20101125
  4. CRESTOR [Concomitant]
  5. ZYLORIC [Concomitant]
  6. SIGMART [Concomitant]
  7. TAKEPRON [Concomitant]
  8. CALCIUM CARBONATE [Concomitant]
  9. ARTIST [Concomitant]
  10. HALCION [Concomitant]
  11. KETOPROFEN [Concomitant]
  12. WARFARIN [Concomitant]
  13. ASPIRIN [Concomitant]
  14. HERBESSER R [Concomitant]
  15. YODEL [Concomitant]

REACTIONS (2)
  - ANAPHYLACTIC SHOCK [None]
  - STRESS CARDIOMYOPATHY [None]
